FAERS Safety Report 20973599 (Version 1)
Quarter: 2022Q2

REPORT INFORMATION
  Report Type: Spontaneous
  Country: DE (occurrence: DE)
  Receive Date: 20220617
  Receipt Date: 20220617
  Transmission Date: 20220721
  Serious: Yes (Hospitalization)
  Sender: FDA-Public Use
  Company Number: DE-TEVA-2022-DE-2045016

PATIENT
  Age: 74 Year
  Sex: Female

DRUGS (2)
  1. PANTOPRAZOLE [Suspect]
     Active Substance: PANTOPRAZOLE
     Indication: Duodenogastric reflux
     Dosage: 80 MILLIGRAM DAILY; ONE TABLET IN THE MORNING AND ONE IN THE EVENING
     Route: 048
     Dates: start: 202201, end: 2022
  2. PANTOPRAZOLE [Suspect]
     Active Substance: PANTOPRAZOLE
     Dosage: 80 MILLIGRAM DAILY; ONE TABLET IN THE MORNING AND ONE IN THE EVENING
     Route: 048
     Dates: start: 2022

REACTIONS (10)
  - Fungal infection [Recovering/Resolving]
  - Neuralgia [Unknown]
  - Abdominal pain [Unknown]
  - Abdominal pain [Unknown]
  - Paraesthesia [Unknown]
  - Skin exfoliation [Unknown]
  - Head discomfort [Unknown]
  - Blood sodium decreased [Unknown]
  - Weight decreased [Unknown]
  - Therapeutic product effect incomplete [Unknown]

NARRATIVE: CASE EVENT DATE: 20220101
